FAERS Safety Report 20556125 (Version 1)
Quarter: 2022Q1

REPORT INFORMATION
  Report Type: Report from Study
  Country: CN (occurrence: CN)
  Receive Date: 20220304
  Receipt Date: 20220304
  Transmission Date: 20220423
  Serious: Yes (Death, Other)
  Sender: FDA-Public Use
  Company Number: CN-PFIZER INC-202200354682

PATIENT

DRUGS (3)
  1. EPIRUBICIN HYDROCHLORIDE [Suspect]
     Active Substance: EPIRUBICIN HYDROCHLORIDE
     Indication: Gastric cancer
     Dosage: 50 MG/M2, ON DAY 1
  2. OXALIPLATIN [Suspect]
     Active Substance: OXALIPLATIN
     Indication: Gastric cancer
     Dosage: 130 MG/M2, ON DAY 1
  3. XELODA [Suspect]
     Active Substance: CAPECITABINE
     Indication: Gastric cancer
     Dosage: 1000 MG/M2, ON DAYS 1-14

REACTIONS (1)
  - Pneumonia [Fatal]
